FAERS Safety Report 25127918 (Version 3)
Quarter: 2025Q2

REPORT INFORMATION
  Report Type: Spontaneous
  Country: KR (occurrence: KR)
  Receive Date: 20250327
  Receipt Date: 20250408
  Transmission Date: 20250717
  Serious: Yes (Hospitalization, Other)
  Sender: CELLTRION
  Company Number: KR-CELLTRION INC.-2025KR009175

PATIENT

DRUGS (9)
  1. INFLIXIMAB [Suspect]
     Active Substance: INFLIXIMAB
     Indication: Colitis ulcerative
     Route: 042
     Dates: start: 20241021
  2. INFLIXIMAB [Suspect]
     Active Substance: INFLIXIMAB
     Route: 042
     Dates: start: 20241104
  3. INFLIXIMAB [Suspect]
     Active Substance: INFLIXIMAB
     Route: 042
     Dates: start: 20241202
  4. INFLIXIMAB [Suspect]
     Active Substance: INFLIXIMAB
     Route: 042
     Dates: start: 20250127
  5. INFLIXIMAB [Suspect]
     Active Substance: INFLIXIMAB
     Route: 042
     Dates: start: 20250324
  6. AZATHIOPRINE [Concomitant]
     Active Substance: AZATHIOPRINE
     Indication: Colitis ulcerative
     Route: 048
     Dates: start: 20240415
  7. FEROBA YOU SR [Concomitant]
     Indication: Iron deficiency anaemia
     Route: 048
     Dates: start: 20241104, end: 20250324
  8. PENTASA [Concomitant]
     Active Substance: MESALAMINE
     Indication: Colitis ulcerative
     Route: 048
     Dates: start: 20230125
  9. ASACOL [Concomitant]
     Active Substance: MESALAMINE
     Indication: Colitis ulcerative
     Route: 054
     Dates: start: 20230125

REACTIONS (3)
  - Colitis ulcerative [Recovered/Resolved]
  - Clostridium difficile infection [Recovered/Resolved]
  - Underdose [Unknown]

NARRATIVE: CASE EVENT DATE: 20250114
